FAERS Safety Report 22038900 (Version 1)
Quarter: 2023Q1

REPORT INFORMATION
  Report Type: Spontaneous
  Country: US (occurrence: US)
  Receive Date: 20230227
  Receipt Date: 20230227
  Transmission Date: 20230418
  Serious: No
  Sender: FDA-Public Use
  Company Number: US-IGSA-BIG0020011

PATIENT
  Age: 51 Year
  Sex: Female
  Weight: 64 kg

DRUGS (12)
  1. PROLASTIN-C LIQUID [Suspect]
     Active Substance: .ALPHA.1-PROTEINASE INHIBITOR HUMAN
     Indication: Alpha-1 antitrypsin deficiency
     Dosage: 3840 MILLIGRAM, Q.WK.
     Route: 042
     Dates: start: 20220726
  2. PROLASTIN-C LIQUID [Suspect]
     Active Substance: .ALPHA.1-PROTEINASE INHIBITOR HUMAN
     Dosage: 3840 MILLIGRAM, Q.WK.
     Route: 042
     Dates: start: 20220513
  3. CLARITIN [Concomitant]
     Active Substance: LORATADINE
  4. MELATONIN [Concomitant]
     Active Substance: MELATONIN
  5. VITAMINS [Concomitant]
     Active Substance: VITAMINS
  6. CETIRIZINE HYDROCHLORIDE [Concomitant]
     Active Substance: CETIRIZINE HYDROCHLORIDE
  7. PEPCID AC [Concomitant]
     Active Substance: FAMOTIDINE
  8. MESTINON [Concomitant]
     Active Substance: PYRIDOSTIGMINE BROMIDE
  9. AMLODIPINE BESYLATE [Concomitant]
     Active Substance: AMLODIPINE BESYLATE
  10. ARNUITY ELLIPTA [Concomitant]
     Active Substance: FLUTICASONE FUROATE
  11. VITAMIN C [Concomitant]
     Active Substance: ASCORBIC ACID
  12. VITAMIN D NOS [Concomitant]
     Active Substance: VITAMIN D NOS

REACTIONS (1)
  - Headache [Recovering/Resolving]

NARRATIVE: CASE EVENT DATE: 20220726
